FAERS Safety Report 22650385 (Version 1)
Quarter: 2023Q2

REPORT INFORMATION
  Report Type: Spontaneous
  Country: CZ (occurrence: CZ)
  Receive Date: 20230628
  Receipt Date: 20230628
  Transmission Date: 20230721
  Serious: Yes (Life-Threatening, Hospitalization, Disabling, Other)
  Sender: FDA-Public Use
  Company Number: None

PATIENT
  Age: 67 Year
  Sex: Male
  Weight: 88 kg

DRUGS (6)
  1. KEYTRUDA [Suspect]
     Active Substance: PEMBROLIZUMAB
     Indication: Tongue neoplasm malignant stage unspecified
     Dosage: ADMINISTERED IN A 3-WEEK CYCLE, THERAPY DISCONTINUED DUE TO TUMOR DISAPPEARANCE
     Route: 042
     Dates: start: 20221123, end: 20230425
  2. CISPLATIN [Concomitant]
     Active Substance: CISPLATIN
     Indication: Tongue neoplasm malignant stage unspecified
     Dosage: TOTAL OF 5 CYCLES AT 3-WEEK INTERVALS, CHT DISCONTINUED DUE TO ONGOING NEUTROPENIA AND IMMUNOTHERAPY
     Route: 042
     Dates: start: 20221025, end: 20230110
  3. TAMSULOSIN [Concomitant]
     Active Substance: TAMSULOSIN
  4. ATORVASTATIN CALCIUM [Concomitant]
     Active Substance: ATORVASTATIN CALCIUM
     Dosage: 1-0-0
     Route: 048
  5. AMLODIPINE BESYLATE [Concomitant]
     Active Substance: AMLODIPINE BESYLATE
     Dosage: 1-0-0
     Route: 048
  6. 5 FLUOROURACIL EBEWE [Concomitant]
     Indication: Tongue neoplasm malignant stage unspecified
     Dosage: TOTAL OF 5 CYCLES AT 3-WEEK INTERVALS, CHT DISCONTINUED DUE TO ONGOING NEUTROPENIA AND IMMUNOTHERAPY
     Route: 042
     Dates: start: 20221025, end: 20230110

REACTIONS (9)
  - Conjunctivitis [Recovering/Resolving]
  - Rash maculo-papular [Recovering/Resolving]
  - Autoimmune dermatitis [Recovering/Resolving]
  - Autoimmune myositis [Recovering/Resolving]
  - Paraesthesia [Recovering/Resolving]
  - Hypothyroidism [Recovering/Resolving]
  - Peripheral sensory neuropathy [Recovering/Resolving]
  - Muscular weakness [Recovering/Resolving]
  - Autoimmune hepatitis [Recovering/Resolving]

NARRATIVE: CASE EVENT DATE: 20230301
